FAERS Safety Report 24743732 (Version 1)
Quarter: 2024Q4

REPORT INFORMATION
  Report Type: Spontaneous
  Country: IL (occurrence: IL)
  Receive Date: 20241217
  Receipt Date: 20241217
  Transmission Date: 20250114
  Serious: Yes (Hospitalization)
  Sender: VERTEX
  Company Number: IL-VERTEX PHARMACEUTICALS-2024-019251

PATIENT
  Sex: Female

DRUGS (1)
  1. SYMDEKO [Suspect]
     Active Substance: IVACAFTOR\TEZACAFTOR
     Indication: Cystic fibrosis
     Dosage: 100MG TEZACAFTOR/150MG IVACAFTOR AND 150MG IVACAFTOR
     Route: 048

REACTIONS (1)
  - Appendicitis [Unknown]
